FAERS Safety Report 7917694-6 (Version None)
Quarter: 2011Q4

REPORT INFORMATION
  Report Type: 
  Country: None (occurrence: None)
  Receive Date: 20111116
  Receipt Date: 20111110
  Transmission Date: 20120403
  Serious: Yes (Hospitalization)
  Sender: FDA-Public Use
  Company Number: JP-BRISTOL-MYERS SQUIBB COMPANY-16220782

PATIENT
  Age: 68 Year
  Sex: Female

DRUGS (2)
  1. PARAPLATIN [Suspect]
     Indication: OVARIAN CANCER
     Route: 041
     Dates: start: 20111104, end: 20111104
  2. TAXOL [Suspect]
     Indication: OVARIAN CANCER
     Dosage: ROUTE :DIV
     Route: 041
     Dates: start: 20111104, end: 20111104

REACTIONS (2)
  - RENAL IMPAIRMENT [None]
  - SKIN DISORDER [None]
